FAERS Safety Report 14226729 (Version 1)
Quarter: 2017Q4

REPORT INFORMATION
  Report Type: Spontaneous
  Country: JP (occurrence: JP)
  Receive Date: 20171127
  Receipt Date: 20171127
  Transmission Date: 20180321
  Serious: Yes (Death, Hospitalization, Other)
  Sender: FDA-Public Use
  Company Number: JP-BAYER-2017-190806

PATIENT
  Age: 87 Year
  Sex: Male
  Weight: 52.6 kg

DRUGS (10)
  1. OLMETEC [Concomitant]
     Active Substance: OLMESARTAN MEDOXOMIL
     Indication: CARDIAC FAILURE
     Dosage: DAILY DOSE 40 MG
     Route: 048
     Dates: start: 20020510, end: 20171002
  2. BISOPROLOL [Concomitant]
     Active Substance: BISOPROLOL
     Indication: CARDIAC FAILURE
     Dosage: DAILY DOSE 5 MG
     Route: 048
     Dates: start: 20000510
  3. LANSOPRAZOLE. [Concomitant]
     Active Substance: LANSOPRAZOLE
     Indication: PROPHYLAXIS AGAINST GASTROINTESTINAL ULCER
     Dosage: UNK
     Route: 048
     Dates: start: 20010712
  4. URSODEOXYCHOLIC ACID [Concomitant]
     Active Substance: URSODIOL
     Indication: CHOLELITHIASIS
     Dosage: DAILY DOSE 300 MG
     Route: 048
     Dates: start: 20001220
  5. BAYASPIRIN 100 MG [Suspect]
     Active Substance: ASPIRIN
     Indication: THROMBOSIS PROPHYLAXIS
     Dosage: 100 MG, QD
     Route: 048
     Dates: start: 201710
  6. FUROSEMIDE. [Concomitant]
     Active Substance: FUROSEMIDE
     Indication: CARDIAC FAILURE
     Dosage: DAILY DOSE 20 MG
     Route: 048
     Dates: start: 20020729
  7. VESICARE [Concomitant]
     Active Substance: SOLIFENACIN SUCCINATE
     Indication: HYPERTONIC BLADDER
     Dosage: DAILY DOSE 5 MG
     Route: 048
     Dates: end: 20171002
  8. BAYASPIRIN 100 MG [Interacting]
     Active Substance: ASPIRIN
     Indication: ANGINA PECTORIS
     Dosage: 100 MG, QD
     Route: 048
     Dates: start: 20020808, end: 20171002
  9. EDOXABAN [Interacting]
     Active Substance: EDOXABAN TOSYLATE
     Indication: ATRIAL FIBRILLATION
     Dosage: DAILY DOSE 30 MG
     Route: 048
     Dates: end: 20171002
  10. SPIRONOLACTONE. [Concomitant]
     Active Substance: SPIRONOLACTONE
     Indication: CARDIAC FAILURE
     Dosage: DAILY DOSE 25 MG
     Route: 048
     Dates: end: 20171002

REACTIONS (7)
  - Vomiting [None]
  - Bladder neoplasm [Fatal]
  - Labelled drug-drug interaction medication error [None]
  - Drug administration error [None]
  - Urinary bladder haemorrhage [None]
  - Haematuria [Unknown]
  - Abdominal distension [None]

NARRATIVE: CASE EVENT DATE: 20170930
